FAERS Safety Report 9271504 (Version 1)
Quarter: 2013Q2

REPORT INFORMATION
  Report Type: Report from Study
  Country: CA (occurrence: CA)
  Receive Date: 20130506
  Receipt Date: 20130506
  Transmission Date: 20140414
  Serious: Yes (Hospitalization)
  Sender: FDA-Public Use
  Company Number: CA-JNJFOC-20130417259

PATIENT
  Sex: Male
  Weight: 77.8 kg

DRUGS (10)
  1. REMICADE [Suspect]
     Indication: RHEUMATOID ARTHRITIS
     Route: 042
     Dates: start: 20080130
  2. FOLIC ACID [Concomitant]
     Route: 065
  3. METHOTREXATE [Concomitant]
     Route: 065
  4. CITALOPRAM [Concomitant]
     Route: 065
  5. PANTOLOC [Concomitant]
     Route: 065
  6. PREDNISONE [Concomitant]
     Route: 065
  7. VENTOLIN [Concomitant]
     Route: 065
  8. ASA [Concomitant]
     Route: 065
  9. FLOMAX [Concomitant]
     Route: 065
  10. ADVAIR [Concomitant]
     Route: 065

REACTIONS (1)
  - Chronic obstructive pulmonary disease [Unknown]
